FAERS Safety Report 8305787-3 (Version None)
Quarter: 2012Q2

REPORT INFORMATION
  Report Type: 
  Country: None (occurrence: None)
  Receive Date: 20120423
  Receipt Date: 20090225
  Transmission Date: 20120825
  Serious: Yes (Other)
  Sender: FDA-Public Use
  Company Number: US-TEVA-US025524

PATIENT
  Sex: Male

DRUGS (3)
  1. ACTIQ [Suspect]
     Indication: CANCER PAIN
     Dosage: 19200 MICROGRAM; 12 LOZENGES PER DAY
     Route: 002
  2. ACTIQ [Suspect]
     Indication: BACK PAIN
  3. OXYCODONE HCL [Concomitant]
     Indication: PAIN
     Dosage: 560 MILLIGRAM; 7 PER DAY
     Route: 065

REACTIONS (1)
  - CONVULSION [None]
